FAERS Safety Report 25668268 (Version 1)
Quarter: 2025Q3

REPORT INFORMATION
  Report Type: Report from Study
  Country: US (occurrence: US)
  Receive Date: 20250812
  Receipt Date: 20250812
  Transmission Date: 20251020
  Serious: Yes (Hospitalization, Other)
  Sender: SUNOVION
  Company Number: US-SUMITOMO PHARMA SWITZERLAND GMBH-2024SPA003440

PATIENT
  Age: 54 Year
  Sex: Male

DRUGS (4)
  1. ORGOVYX [Suspect]
     Active Substance: RELUGOLIX
     Indication: Prostate cancer
     Dosage: 120 MG, QD
     Route: 048
     Dates: start: 20240913
  2. TROSPIUM [Concomitant]
     Active Substance: TROSPIUM
     Indication: Hypertonic bladder
  3. OZEMPIC [Concomitant]
     Active Substance: SEMAGLUTIDE
     Indication: Weight abnormal
  4. OZEMPIC [Concomitant]
     Active Substance: SEMAGLUTIDE
     Indication: Diabetes mellitus

REACTIONS (13)
  - Eye prosthesis insertion [Unknown]
  - Eye prosthesis removal [Unknown]
  - Prostatic operation [Unknown]
  - Diabetes mellitus [Recovering/Resolving]
  - Cold sweat [Unknown]
  - Ventricular extrasystoles [Unknown]
  - Stress [Unknown]
  - Hypertonic bladder [Unknown]
  - Weight abnormal [Unknown]
  - Hypertension [Recovering/Resolving]
  - Hot flush [Unknown]
  - Incorrect dose administered [Recovered/Resolved]
  - Product dose omission issue [Recovered/Resolved]

NARRATIVE: CASE EVENT DATE: 20250604
